FAERS Safety Report 7302947-5 (Version None)
Quarter: 2011Q1

REPORT INFORMATION
  Report Type: 
  Country: None (occurrence: None)
  Receive Date: 20110218
  Receipt Date: 20101124
  Transmission Date: 20110831
  Serious: Yes (Hospitalization)
  Sender: FDA-Public Use
  Company Number: US-ASTRAZENECA-2010SE56395

PATIENT
  Age: 16 Year
  Sex: Male
  Weight: 158.8 kg

DRUGS (5)
  1. IBUPROFEN [Concomitant]
     Indication: PAIN
     Route: 048
     Dates: start: 20100101
  2. ATIVAN [Concomitant]
     Indication: ASPERGER'S DISORDER
     Route: 048
     Dates: start: 20100101
  3. SYNTHROID [Concomitant]
     Indication: HYPOTHYROIDISM
     Route: 048
     Dates: start: 20100101
  4. SEROQUEL XR [Suspect]
     Route: 048
  5. SEROQUEL XR [Suspect]
     Indication: BIPOLAR DISORDER
     Route: 048
     Dates: start: 20101122

REACTIONS (3)
  - LIVER FUNCTION TEST ABNORMAL [None]
  - METHAEMOGLOBINURIA [None]
  - MYOGLOBINURIA [None]
